FAERS Safety Report 17011518 (Version 1)
Quarter: 2019Q4

REPORT INFORMATION
  Report Type: Spontaneous
  Country: US (occurrence: US)
  Receive Date: 20191108
  Receipt Date: 20191108
  Transmission Date: 20200122
  Serious: No
  Sender: FDA-Public Use
  Company Number: US-NOVOPROD-681674

PATIENT
  Age: 59 Year
  Sex: Female
  Weight: 52.15 kg

DRUGS (2)
  1. TRESIBA [Suspect]
     Active Substance: INSULIN DEGLUDEC
     Indication: DIABETES MELLITUS
     Dosage: 10 IU
     Route: 058
     Dates: start: 201807
  2. TRESIBA [Suspect]
     Active Substance: INSULIN DEGLUDEC
     Dosage: LOWERED TO 8 UNITS
     Route: 058

REACTIONS (6)
  - Decreased appetite [Not Recovered/Not Resolved]
  - Drug ineffective [Unknown]
  - Nausea [Not Recovered/Not Resolved]
  - Blood glucose increased [Unknown]
  - Blood glucose decreased [Unknown]
  - Incorrect dose administered by device [Unknown]

NARRATIVE: CASE EVENT DATE: 201908
